FAERS Safety Report 4843821-3 (Version None)
Quarter: 2005Q4

REPORT INFORMATION
  Report Type: 
  Country: None (occurrence: None)
  Receive Date: 20051202
  Receipt Date: 20041203
  Transmission Date: 20060501
  Serious: Yes (Death)
  Sender: FDA-Public Use
  Company Number: GB-GLAXOSMITHKLINE-B0359653A

PATIENT
  Sex: Female

DRUGS (5)
  1. SEROXAT [Suspect]
     Indication: DEPRESSION
     Route: 065
  2. THIORIDAZINE HCL [Concomitant]
     Dosage: 25MG FOUR TIMES PER DAY
     Route: 065
  3. ZOPICLONE [Concomitant]
     Dosage: 3.75MG AT NIGHT
     Route: 065
  4. CHLORPROMAZINE [Concomitant]
     Route: 065
  5. LOFEPRAMINE [Concomitant]
     Route: 065

REACTIONS (7)
  - CEREBROVASCULAR DISORDER [None]
  - COMPLETED SUICIDE [None]
  - ILL-DEFINED DISORDER [None]
  - INTENTIONAL OVERDOSE [None]
  - LETHARGY [None]
  - MEMORY IMPAIRMENT [None]
  - TREMOR [None]
